FAERS Safety Report 13826324 (Version 43)
Quarter: 2021Q2

REPORT INFORMATION
  Report Type: Spontaneous
  Country: CA (occurrence: CA)
  Receive Date: 20170802
  Receipt Date: 20210616
  Transmission Date: 20210716
  Serious: Yes (Hospitalization, Other)
  Sender: FDA-Public Use
  Company Number: CA-CELLTRION INC.-2017CA009950

PATIENT

DRUGS (36)
  1. INFLECTRA [Suspect]
     Active Substance: INFLIXIMAB-DYYB
     Indication: CROHN^S DISEASE
     Dosage: 350 MG, AT 0, 2, 6 WEEKS, THEN EVERY 8 WEEKS
     Route: 042
     Dates: start: 20170711
  2. INFLECTRA [Suspect]
     Active Substance: INFLIXIMAB-DYYB
     Dosage: 350 MG, AT 0, 2, 6 WEEKS, THEN EVERY 8 WEEKS
     Route: 042
     Dates: start: 20171213, end: 20171213
  3. INFLECTRA [Suspect]
     Active Substance: INFLIXIMAB-DYYB
     Dosage: 365 MG, EVERY 8 WEEKS
     Route: 042
     Dates: start: 20180801
  4. INFLECTRA [Suspect]
     Active Substance: INFLIXIMAB-DYYB
     Dosage: 600 MG, AT 4 WEEKS THEN EVERY 6 WEEKS
     Route: 042
     Dates: start: 20201029
  5. DIPHENHYDRAMINE. [Concomitant]
     Active Substance: DIPHENHYDRAMINE
     Dosage: 50 MG
     Dates: start: 20210308, end: 20210308
  6. INFLECTRA [Suspect]
     Active Substance: INFLIXIMAB-DYYB
     Dosage: 365 MG, EVERY 8 WEEKS
     Route: 042
     Dates: start: 20180607
  7. INFLECTRA [Suspect]
     Active Substance: INFLIXIMAB-DYYB
     Dosage: 365 MG, EVERY 8 WEEKS
     Route: 042
     Dates: start: 20190116
  8. INFLECTRA [Suspect]
     Active Substance: INFLIXIMAB-DYYB
     Dosage: 365 MG, EVERY 8 WEEKS
     Route: 042
     Dates: start: 20190710
  9. INFLECTRA [Suspect]
     Active Substance: INFLIXIMAB-DYYB
     Dosage: 600 MG, AT 4 WEEKS THEN EVERY 6 WEEKS
     Route: 042
     Dates: start: 20200625
  10. ASACOL [Concomitant]
     Active Substance: MESALAMINE
     Dosage: 1 DF
  11. DIMENHYDRINATE. [Concomitant]
     Active Substance: DIMENHYDRINATE
     Indication: PREMEDICATION
     Dosage: 50 MG
     Dates: start: 20200625, end: 20200625
  12. INFLECTRA [Suspect]
     Active Substance: INFLIXIMAB-DYYB
     Dosage: 365 MG, EVERY 8 WEEKS
     Route: 042
     Dates: start: 20180926
  13. INFLECTRA [Suspect]
     Active Substance: INFLIXIMAB-DYYB
     Dosage: 365 MG, EVERY 8 WEEKS
     Route: 042
     Dates: start: 20190515
  14. INFLECTRA [Suspect]
     Active Substance: INFLIXIMAB-DYYB
     Dosage: 600 MG, AT 4 WEEKS THEN EVERY 6 WEEKS
     Route: 042
     Dates: start: 20201210
  15. ACETAMINOPHEN. [Concomitant]
     Active Substance: ACETAMINOPHEN
     Dosage: 650 MG
     Dates: start: 20210308, end: 20210308
  16. INFLECTRA [Suspect]
     Active Substance: INFLIXIMAB-DYYB
     Dosage: 600 MG, AT 4 WEEKS THEN EVERY 6 WEEKS
     Route: 042
     Dates: start: 20200402
  17. DIPHENHYDRAMINE. [Concomitant]
     Active Substance: DIPHENHYDRAMINE
     Indication: PREMEDICATION
     Dosage: 50 MG
     Dates: start: 20200625, end: 20200625
  18. METHOTREXATE. [Concomitant]
     Active Substance: METHOTREXATE
     Dosage: 25 MG, UNK
     Route: 058
     Dates: start: 201610
  19. INFLECTRA [Suspect]
     Active Substance: INFLIXIMAB-DYYB
     Dosage: 600 MG, AT 4 WEEKS THEN EVERY 6 WEEKS
     Route: 042
     Dates: start: 20200514
  20. INFLECTRA [Suspect]
     Active Substance: INFLIXIMAB-DYYB
     Dosage: 365 MG, EVERY 8 WEEKS
     Route: 042
     Dates: start: 20180207, end: 20191030
  21. INFLECTRA [Suspect]
     Active Substance: INFLIXIMAB-DYYB
     Dosage: 365 MG, EVERY 8 WEEKS
     Route: 042
     Dates: start: 20181121, end: 20181121
  22. INFLECTRA [Suspect]
     Active Substance: INFLIXIMAB-DYYB
     Dosage: 365 MG, EVERY 8 WEEKS
     Route: 042
     Dates: start: 20190903
  23. INFLECTRA [Suspect]
     Active Substance: INFLIXIMAB-DYYB
     Dosage: 600 MG, AT 4 WEEKS THEN EVERY 6 WEEKS
     Route: 042
     Dates: start: 20210128
  24. ACETAMINOPHEN. [Concomitant]
     Active Substance: ACETAMINOPHEN
     Indication: PREMEDICATION
     Dosage: 650 MG
     Dates: start: 20200625, end: 20200625
  25. OXYBUTYNIN. [Concomitant]
     Active Substance: OXYBUTYNIN CHLORIDE
     Dosage: UNK, FOR 6 MONTHS
     Dates: start: 20191210
  26. INFLECTRA [Suspect]
     Active Substance: INFLIXIMAB-DYYB
     Dosage: 365 MG, EVERY 8 WEEKS
     Route: 042
     Dates: start: 20190320
  27. INFLECTRA [Suspect]
     Active Substance: INFLIXIMAB-DYYB
     Dosage: 365 MG, EVERY 8 WEEKS
     Route: 042
     Dates: start: 20191030
  28. INFLECTRA [Suspect]
     Active Substance: INFLIXIMAB-DYYB
     Dosage: 600 MG, AT 4 WEEKS THEN EVERY 6 WEEKS
     Route: 042
     Dates: start: 20200109
  29. INFLECTRA [Suspect]
     Active Substance: INFLIXIMAB-DYYB
     Dosage: 600 MG, AT 4 WEEKS THEN EVERY 6 WEEKS
     Route: 042
     Dates: start: 20200806
  30. INFLECTRA [Suspect]
     Active Substance: INFLIXIMAB-DYYB
     Dosage: 600 MG, AT 4 WEEKS THEN EVERY 6 WEEKS
     Route: 042
     Dates: start: 20200917
  31. INFLECTRA [Suspect]
     Active Substance: INFLIXIMAB-DYYB
     Dosage: 600 MG, AT 4 WEEKS THEN EVERY 6 WEEKS
     Route: 042
     Dates: start: 20210308
  32. INFLECTRA [Suspect]
     Active Substance: INFLIXIMAB-DYYB
     Dosage: 600 MG, AT 4 WEEKS THEN EVERY 6 WEEKS
     Route: 042
     Dates: start: 20210531
  33. HYDROXYCHLOROQUINE [Concomitant]
     Active Substance: HYDROXYCHLOROQUINE
     Dosage: UNK, 1X/DAY
     Dates: start: 201612
  34. OXYBUTYNIN. [Concomitant]
     Active Substance: OXYBUTYNIN CHLORIDE
     Dosage: 1 DF
  35. INFLECTRA [Suspect]
     Active Substance: INFLIXIMAB-DYYB
     Dosage: 365 MG, EVERY 8 WEEKS
     Route: 042
     Dates: start: 20180404
  36. INFLECTRA [Suspect]
     Active Substance: INFLIXIMAB-DYYB
     Dosage: 600 MG, AT 4 WEEKS THEN EVERY 6 WEEKS
     Route: 042
     Dates: start: 20210419

REACTIONS (50)
  - Diarrhoea haemorrhagic [Not Recovered/Not Resolved]
  - Off label use [Unknown]
  - Pain in extremity [Not Recovered/Not Resolved]
  - Erythema nodosum [Unknown]
  - Vertigo [Unknown]
  - Fall [Not Recovered/Not Resolved]
  - Vulvovaginal mycotic infection [Unknown]
  - Tooth fracture [Unknown]
  - Abdominal pain [Not Recovered/Not Resolved]
  - Fatigue [Not Recovered/Not Resolved]
  - Wound abscess [Unknown]
  - Acute febrile neutrophilic dermatosis [Not Recovered/Not Resolved]
  - Dizziness [Recovered/Resolved]
  - Osteoporosis [Not Recovered/Not Resolved]
  - Gait disturbance [Not Recovered/Not Resolved]
  - Peripheral swelling [Not Recovered/Not Resolved]
  - Toothache [Unknown]
  - Vomiting [Recovered/Resolved]
  - Condition aggravated [Not Recovered/Not Resolved]
  - Drug level decreased [Unknown]
  - Skin lesion [Not Recovered/Not Resolved]
  - Hypersomnia [Unknown]
  - Asthenia [Unknown]
  - Blood pressure decreased [Unknown]
  - Blood pressure increased [Unknown]
  - Intentional product use issue [Unknown]
  - Thyroid disorder [Not Recovered/Not Resolved]
  - Abdominal distension [Not Recovered/Not Resolved]
  - Nausea [Unknown]
  - Pneumonia [Recovered/Resolved]
  - X-ray abnormal [Unknown]
  - Hypoaesthesia [Not Recovered/Not Resolved]
  - Arthralgia [Not Recovered/Not Resolved]
  - Pyrexia [Recovered/Resolved]
  - Feeling hot [Unknown]
  - Weight decreased [Unknown]
  - Nephrolithiasis [Unknown]
  - Therapeutic response shortened [Not Recovered/Not Resolved]
  - Inappropriate schedule of product administration [Unknown]
  - Synovitis [Unknown]
  - Limb discomfort [Not Recovered/Not Resolved]
  - Weight increased [Unknown]
  - Pustule [Not Recovered/Not Resolved]
  - Infection [Unknown]
  - Incorrect dose administered [Unknown]
  - Off label use [Unknown]
  - Skin infection [Not Recovered/Not Resolved]
  - Poor venous access [Not Recovered/Not Resolved]
  - Urinary tract infection [Unknown]
  - Muscular weakness [Not Recovered/Not Resolved]

NARRATIVE: CASE EVENT DATE: 201708
